FAERS Safety Report 9995420 (Version 1)
Quarter: 2014Q1

REPORT INFORMATION
  Report Type: Spontaneous
  Country: DE (occurrence: DE)
  Receive Date: 20140311
  Receipt Date: 20140311
  Transmission Date: 20141002
  Serious: Yes (Other)
  Sender: FDA-Public Use
  Company Number: DE-DRREDDYS-GER/GER/14/0038729

PATIENT
  Age: 63 Year
  Sex: Male

DRUGS (2)
  1. CIPROFLOXACIN [Suspect]
     Indication: PROSTATITIS
  2. LEVOFLOXACIN [Suspect]
     Indication: PROSTATITIS

REACTIONS (13)
  - Neuropathy peripheral [Unknown]
  - Paraesthesia [Recovered/Resolved]
  - Hypoaesthesia [Not Recovered/Not Resolved]
  - Skin burning sensation [Unknown]
  - Vision blurred [Unknown]
  - Depression [Unknown]
  - Poor quality sleep [Unknown]
  - Memory impairment [Unknown]
  - Pain in extremity [Unknown]
  - Nodule [Unknown]
  - Alopecia [Unknown]
  - Tension headache [Not Recovered/Not Resolved]
  - Cataract [Not Recovered/Not Resolved]
